FAERS Safety Report 24994748 (Version 1)
Quarter: 2025Q1

REPORT INFORMATION
  Report Type: Spontaneous
  Country: US (occurrence: US)
  Receive Date: 20250221
  Receipt Date: 20250221
  Transmission Date: 20250409
  Serious: Yes (Hospitalization, Other)
  Sender: RANBAXY
  Company Number: US-SUN PHARMACEUTICAL INDUSTRIES LTD-2025R1-494909

PATIENT
  Age: 34 Year
  Sex: Female

DRUGS (2)
  1. VERAPAMIL [Suspect]
     Active Substance: VERAPAMIL HYDROCHLORIDE
     Indication: Prophylaxis
     Dosage: 120 MILLIGRAM, DAILY
     Route: 065
  2. DRONEDARONE [Suspect]
     Active Substance: DRONEDARONE
     Indication: Prophylaxis
     Route: 065

REACTIONS (1)
  - Therapy non-responder [Unknown]
